FAERS Safety Report 5722814-8 (Version None)
Quarter: 2008Q2

REPORT INFORMATION
  Report Type: 
  Country: None (occurrence: None)
  Receive Date: 20080429
  Receipt Date: 20080107
  Transmission Date: 20081010
  Serious: No
  Sender: FDA-Public Use
  Company Number: US-ASTRAZENECA-2008UW00395

PATIENT
  Age: 75 Year
  Sex: Female
  Weight: 61.2 kg

DRUGS (6)
  1. NEXIUM [Suspect]
     Indication: OESOPHAGITIS
     Route: 048
  2. COUMADIN [Concomitant]
  3. POTASSIUM CHLORIDE [Concomitant]
  4. FISH OIL [Concomitant]
  5. VITAMIN B-12 [Concomitant]
  6. VERAPAMIL [Concomitant]

REACTIONS (6)
  - ANXIETY [None]
  - DIZZINESS [None]
  - HEADACHE [None]
  - NERVOUSNESS [None]
  - PRODUCTIVE COUGH [None]
  - VISION BLURRED [None]
